FAERS Safety Report 7352973-5 (Version None)
Quarter: 2011Q1

REPORT INFORMATION
  Report Type: 
  Country: None (occurrence: None)
  Receive Date: 20110315
  Receipt Date: 20110308
  Transmission Date: 20110831
  Serious: Yes (Hospitalization)
  Sender: FDA-Public Use
  Company Number: A0817040A

PATIENT
  Age: 65 Year
  Sex: Female

DRUGS (2)
  1. AVANDAMET [Suspect]
     Indication: DIABETES MELLITUS
     Route: 048
     Dates: start: 20030521, end: 20080410
  2. AVANDIA [Suspect]
     Dosage: 4MG PER DAY
     Route: 048
     Dates: start: 20030521, end: 20080410

REACTIONS (3)
  - ARTERIOSCLEROSIS [None]
  - CORONARY ARTERY BYPASS [None]
  - MYOCARDIAL INFARCTION [None]
